FAERS Safety Report 5337818-7 (Version None)
Quarter: 2007Q2

REPORT INFORMATION
  Report Type: 
  Country: None (occurrence: None)
  Receive Date: 20070308
  Receipt Date: 20061226
  Transmission Date: 20071010
  Serious: No
  Sender: FDA-Public Use
  Company Number: 2006-BP-15055[PF

PATIENT
  Age: 50 Year
  Sex: Female

DRUGS (8)
  1. SPIRIVA [Suspect]
     Indication: CHRONIC OBSTRUCTIVE PULMONARY DISEASE
     Dosage: 18 MCG (18 MCG, 1 IN 1 D), IH
     Route: 055
     Dates: start: 20060901
  2. LOPRESSOR [Concomitant]
  3. PREVACID [Concomitant]
  4. LIBRIUM [Concomitant]
  5. VITAMIN E [Concomitant]
  6. .. [Concomitant]
  7. CHANTIX [Concomitant]
  8. PREMARIN [Concomitant]

REACTIONS (8)
  - ANXIETY [None]
  - ATTENTION DEFICIT/HYPERACTIVITY DISORDER [None]
  - CHILLS [None]
  - INAPPROPRIATE AFFECT [None]
  - NERVOUSNESS [None]
  - NON-CARDIAC CHEST PAIN [None]
  - PULMONARY CONGESTION [None]
  - WEIGHT INCREASED [None]
